FAERS Safety Report 7481721-3 (Version None)
Quarter: 2011Q2

REPORT INFORMATION
  Report Type: 
  Country: None (occurrence: None)
  Receive Date: 20110516
  Receipt Date: 20110509
  Transmission Date: 20111010
  Serious: Yes (Hospitalization)
  Sender: FDA-Public Use
  Company Number: A0902830A

PATIENT
  Age: 53 Year
  Sex: Male

DRUGS (5)
  1. ASPIRIN [Concomitant]
  2. ADVAIR DISKUS 100/50 [Suspect]
     Indication: ASTHMA
     Dosage: 1PUFF TWICE PER DAY
     Route: 055
     Dates: start: 20050601
  3. LISINOPRIL [Concomitant]
  4. METOPROLOL SUCCINATE [Concomitant]
  5. SPIRIVA [Concomitant]

REACTIONS (10)
  - ASTHMATIC CRISIS [None]
  - DYSPNOEA [None]
  - CIRCULATORY COLLAPSE [None]
  - VEIN DISORDER [None]
  - PNEUMONIA [None]
  - ASTHMA [None]
  - DRUG ADMINISTRATION ERROR [None]
  - THROMBOSIS [None]
  - VENOUS HAEMORRHAGE [None]
  - OEDEMA PERIPHERAL [None]
